FAERS Safety Report 10094438 (Version 1)
Quarter: 2014Q2

REPORT INFORMATION
  Report Type: Spontaneous
  Country: US (occurrence: None)
  Receive Date: 20140421
  Receipt Date: 20140421
  Transmission Date: 20141212
  Serious: No
  Sender: FDA-Public Use
  Company Number: None

PATIENT
  Age: 20 Year
  Sex: Female
  Weight: 58.97 kg

DRUGS (1)
  1. CONCERTA [Suspect]
     Indication: ATTENTION DEFICIT/HYPERACTIVITY DISORDER
     Dosage: 1 PILL  ONCE DAILY  TAKEN BY MOUTH
     Route: 048
     Dates: start: 20130604, end: 20130620

REACTIONS (9)
  - Anxiety [None]
  - Disturbance in attention [None]
  - Palpitations [None]
  - Dizziness [None]
  - Blood pressure increased [None]
  - Panic attack [None]
  - Quality of life decreased [None]
  - Product substitution issue [None]
  - Drug effect decreased [None]
